FAERS Safety Report 5218677-X (Version None)
Quarter: 2007Q1

REPORT INFORMATION
  Report Type: 
  Country: None (occurrence: None)
  Receive Date: 20070122
  Receipt Date: 20070112
  Transmission Date: 20070707
  Serious: Yes (Disabling)
  Sender: FDA-Public Use
  Company Number: 2007SP000704

PATIENT
  Sex: Female

DRUGS (1)
  1. INTRON A [Suspect]
     Indication: MELANOMA RECURRENT

REACTIONS (4)
  - COGNITIVE DISORDER [None]
  - DEPRESSION [None]
  - EMOTIONAL DISORDER [None]
  - MEMORY IMPAIRMENT [None]
